FAERS Safety Report 4613163-X (Version None)
Quarter: 2005Q1

REPORT INFORMATION
  Report Type: 
  Country: None (occurrence: None)
  Receive Date: 20050316
  Receipt Date: 20050301
  Transmission Date: 20050727
  Serious: Yes (Other)
  Sender: FDA-Public Use
  Company Number: 2005-0008107

PATIENT
  Age: 48 Year
  Sex: Male
  Weight: 79.3795 kg

DRUGS (6)
  1. VIREAD [Suspect]
     Indication: HIV INFECTION
     Dosage: 300 MG, 1IN 1 D, ORAL
     Route: 048
     Dates: start: 20020102, end: 20040527
  2. KALETRA [Suspect]
     Indication: HIV INFECTION
     Dosage: 2 IN 1 D, ORAL
     Route: 048
     Dates: start: 20020102
  3. SUSTIVA [Suspect]
     Indication: HIV INFECTION
     Dosage: 600 MG, 1 IN 1 D, ORAL
     Route: 048
     Dates: start: 20020102
  4. DEPO-TESTOSTERONE [Concomitant]
  5. PEG INTRON (PEGINTERFERSON ALFA-2B) [Concomitant]
  6. RIBAVIRIN [Concomitant]

REACTIONS (3)
  - ALANINE AMINOTRANSFERASE INCREASED [None]
  - ASPARTATE AMINOTRANSFERASE INCREASED [None]
  - POLYMYOSITIS [None]
